FAERS Safety Report 13582694 (Version 1)
Quarter: 2017Q2

REPORT INFORMATION
  Report Type: Spontaneous
  Country: PL (occurrence: PL)
  Receive Date: 20170525
  Receipt Date: 20170525
  Transmission Date: 20170830
  Serious: Yes (Death, Hospitalization, Other)
  Sender: FDA-Public Use
  Company Number: PL-MYLANLABS-2017M1031665

PATIENT

DRUGS (9)
  1. TEMOZOLOMIDE. [Suspect]
     Active Substance: TEMOZOLOMIDE
     Indication: EWING^S SARCOMA METASTATIC
     Route: 065
  2. IRINOTECAN [Suspect]
     Active Substance: IRINOTECAN
     Indication: EWING^S SARCOMA METASTATIC
     Route: 065
  3. DACTINOMYCIN [Suspect]
     Active Substance: DACTINOMYCIN
     Indication: EWING^S SARCOMA METASTATIC
     Route: 065
  4. EPIRUBICIN [Suspect]
     Active Substance: EPIRUBICIN
     Indication: EWING^S SARCOMA METASTATIC
     Route: 065
  5. ETOPOSIDE. [Suspect]
     Active Substance: ETOPOSIDE
     Indication: EWING^S SARCOMA METASTATIC
     Route: 065
  6. DOXORUBICIN [Suspect]
     Active Substance: DOXORUBICIN
     Indication: EWING^S SARCOMA METASTATIC
     Route: 065
  7. VINCRISTINE [Suspect]
     Active Substance: VINCRISTINE
     Indication: EWING^S SARCOMA METASTATIC
     Route: 065
  8. CARBOPLATIN. [Suspect]
     Active Substance: CARBOPLATIN
     Indication: EWING^S SARCOMA METASTATIC
     Route: 065
  9. IFOSFAMIDE. [Suspect]
     Active Substance: IFOSFAMIDE
     Indication: EWING^S SARCOMA METASTATIC
     Route: 065

REACTIONS (9)
  - Urinary tract infection fungal [Fatal]
  - Bone marrow failure [Fatal]
  - Agranulocytosis [Fatal]
  - Febrile neutropenia [Fatal]
  - Multiple organ dysfunction syndrome [Fatal]
  - Fungal peritonitis [Fatal]
  - Candida infection [Fatal]
  - Vomiting [Unknown]
  - Gastrointestinal motility disorder [Unknown]
